FAERS Safety Report 20853179 (Version 1)
Quarter: 2022Q2

REPORT INFORMATION
  Report Type: Spontaneous
  Country: US (occurrence: US)
  Receive Date: 20220520
  Receipt Date: 20220520
  Transmission Date: 20220720
  Serious: No
  Sender: FDA-Public Use
  Company Number: US-BRISTOL-MYERS SQUIBB COMPANY-2022-042420

PATIENT
  Age: 80 Year
  Sex: Male
  Weight: 71.6 kg

DRUGS (1)
  1. REVLIMID [Suspect]
     Active Substance: LENALIDOMIDE
     Indication: Plasma cell myeloma
     Dosage: FREQUENCY- 3 WEEKS,IWEEK OFF
     Route: 048
     Dates: start: 20220401

REACTIONS (1)
  - Diarrhoea [Unknown]
